FAERS Safety Report 9369169 (Version 1)
Quarter: 2013Q2

REPORT INFORMATION
  Report Type: Report from Study
  Country: NL (occurrence: NL)
  Receive Date: 20130626
  Receipt Date: 20130626
  Transmission Date: 20140414
  Serious: Yes (Death)
  Sender: FDA-Public Use
  Company Number: PHHY2013NL065423

PATIENT
  Sex: Female

DRUGS (3)
  1. ZOMETA [Suspect]
     Indication: BREAST CANCER METASTATIC
     Dosage: 4 MG/ 100 ML ONCE EVERY 4 WEEKS
     Route: 042
  2. ZOMETA [Suspect]
     Dosage: 4 MG/ 100 ML ONCE EVERY 4 WEEKS
     Route: 042
     Dates: start: 20120312
  3. ZOMETA [Suspect]
     Dosage: 4 MG/ 100 ML ONCE EVERY 4 WEEKS
     Route: 042
     Dates: start: 20130517

REACTIONS (2)
  - Intestinal obstruction [Fatal]
  - Metastasis [Fatal]
